FAERS Safety Report 22531673 (Version 4)
Quarter: 2024Q3

REPORT INFORMATION
  Report Type: Report from Study
  Country: JP (occurrence: JP)
  Receive Date: 20230607
  Receipt Date: 20240708
  Transmission Date: 20241017
  Serious: Yes (Death, Hospitalization)
  Sender: ALNYLAM PHARMACEUTICALS
  Company Number: JP-ALNYLAM PHARMACEUTICALS, INC.-ALN-2023-002580

PATIENT

DRUGS (1)
  1. AMVUTTRA [Suspect]
     Active Substance: VUTRISIRAN
     Indication: Hereditary neuropathic amyloidosis
     Dosage: 25 MILLIGRAM, Q3M
     Route: 058
     Dates: start: 20230228, end: 20230607

REACTIONS (2)
  - Subarachnoid haemorrhage [Fatal]
  - Cardiac failure [Recovering/Resolving]

NARRATIVE: CASE EVENT DATE: 20230528
